FAERS Safety Report 10550215 (Version 1)
Quarter: 2014Q4

REPORT INFORMATION
  Report Type: Other
  Country: FR (occurrence: FR)
  Receive Date: 20141028
  Receipt Date: 20141028
  Transmission Date: 20150529
  Serious: Yes (Other)
  Sender: FDA-Public Use
  Company Number: FR-MYLANLABS-2014M1007643

PATIENT

DRUGS (3)
  1. FINASTERIDE MYLAN 1 MG COMPRIM? PELLICUL? [Suspect]
     Active Substance: FINASTERIDE
     Indication: ALOPECIA
     Dosage: 1 DF, ONCE
     Route: 048
     Dates: start: 20140810, end: 20140810
  2. FINASTERIDE MYLAN 1 MG COMPRIM? PELLIC UL? [Suspect]
     Active Substance: FINASTERIDE
     Dosage: 0.5 DF, ONCE
     Route: 048
     Dates: start: 20140811, end: 20140811
  3. FINASTERIDE MYLAN 1 MG COMPRIM? PELLICUL? [Suspect]
     Active Substance: FINASTERIDE
     Dosage: 0.25 MG, QD
     Route: 048
     Dates: start: 201408

REACTIONS (4)
  - Testicular pain [Not Recovered/Not Resolved]
  - Migraine [Not Recovered/Not Resolved]
  - Loss of consciousness [Recovered/Resolved]
  - Breast pain [Not Recovered/Not Resolved]

NARRATIVE: CASE EVENT DATE: 20140810
